FAERS Safety Report 8025634-7 (Version None)
Quarter: 2012Q1

REPORT INFORMATION
  Report Type: 
  Country: None (occurrence: None)
  Receive Date: 20120105
  Receipt Date: 20111230
  Transmission Date: 20120608
  Serious: No
  Sender: FDA-Public Use
  Company Number: US-BAYER-2012-001127

PATIENT
  Age: 84 Year
  Sex: Female
  Weight: 49 kg

DRUGS (6)
  1. ALEVE (CAPLET) [Suspect]
     Indication: MYALGIA
     Dosage: 1 DF, QD
     Route: 048
     Dates: start: 20111228
  2. MULTIVITAMINS AND IRON [Concomitant]
  3. ACETYLSALICYLIC ACID SRT [Concomitant]
  4. PRESERVISION EYE VITAMIN AND MINERAL SUPPL. [Concomitant]
  5. CALCIUM CARBONATE [Concomitant]
  6. LEVOTHYROXINE SODIUM [Concomitant]

REACTIONS (1)
  - PAIN [None]
